FAERS Safety Report 9776237 (Version 1)
Quarter: 2013Q4

REPORT INFORMATION
  Report Type: Spontaneous
  Country: SI (occurrence: None)
  Receive Date: 20131218
  Receipt Date: 20131218
  Transmission Date: 20140711
  Serious: Yes (Other)
  Sender: FDA-Public Use
  Company Number: SYM-2013-13927

PATIENT
  Age: 68 Year
  Sex: Male

DRUGS (9)
  1. WELLBUTRIN XR [Suspect]
     Indication: DEPRESSION
     Route: 048
     Dates: start: 20131105, end: 20131112
  2. XARELTO (RIVAROXABAN) (RIVAROXABAN) [Concomitant]
  3. MICARDIS (TELMISARTAN) (TELMISARTAN) [Concomitant]
  4. DAROB MITE (SOTALOL HYDROCHLORIDE) (SOTALOL HYDROCHLORIDE) [Concomitant]
  5. NEXIUM [Concomitant]
  6. DOXAZOSIN (DOXAZOSIN) (DOXAZOSIN) [Concomitant]
  7. CORYOL (CARVEDILOL) (CARVEDILOL) [Concomitant]
  8. TERTENSIF (INDAPAMIDE) (INDAPAMIDE) [Concomitant]
  9. LEXAURIN (BROMAZEPAM) (BROMAZEPAM) [Concomitant]

REACTIONS (2)
  - Pruritus [None]
  - Eczema [None]
